FAERS Safety Report 23948296 (Version 2)
Quarter: 2024Q3

REPORT INFORMATION
  Report Type: Spontaneous
  Country: US (occurrence: US)
  Receive Date: 20240607
  Receipt Date: 20240830
  Transmission Date: 20241016
  Serious: No
  Sender: SANOFI AVENTIS
  Company Number: US-SA-SAC20240604000876

PATIENT
  Age: 49 Year
  Sex: Female

DRUGS (11)
  1. DUPIXENT [Suspect]
     Active Substance: DUPILUMAB
     Indication: Dermatitis atopic
     Dosage: 300 MG QOW
     Route: 058
     Dates: start: 20240201, end: 2024
  2. RINVOQ [Concomitant]
     Active Substance: UPADACITINIB
  3. ADACEL TDAP [Concomitant]
     Active Substance: TETANUS TOXOID, REDUCED DIPHTHERIA TOXOID AND ACELLULAR PERTUSSIS VACCINE ADSORBED, TDAP
  4. APAP;CODEINE [Concomitant]
  5. CLOBETASOL [Concomitant]
     Active Substance: CLOBETASOL
  6. ERYTHROMYCIN [Concomitant]
     Active Substance: ERYTHROMYCIN
  7. FLUCONAZOLE [Concomitant]
     Active Substance: FLUCONAZOLE
  8. OPZELURA [Concomitant]
     Active Substance: RUXOLITINIB PHOSPHATE
  9. PERMETHRIN [Concomitant]
     Active Substance: PERMETHRIN
  10. TOBRAMYCIN [Concomitant]
     Active Substance: TOBRAMYCIN\TOBRAMYCIN SULFATE
     Dosage: UNK
  11. FLUOCINOLONE ACET [Concomitant]
     Dosage: UNK

REACTIONS (2)
  - Sleep disorder [Not Recovered/Not Resolved]
  - Therapeutic response decreased [Unknown]

NARRATIVE: CASE EVENT DATE: 20240101
